FAERS Safety Report 6416941-X (Version None)
Quarter: 2009Q4

REPORT INFORMATION
  Report Type: 
  Country: None (occurrence: None)
  Receive Date: 20091027
  Receipt Date: 20090112
  Transmission Date: 20100525
  Serious: No
  Sender: FDA-Public Use
  Company Number: US-ALLERGAN-0900317US

PATIENT
  Sex: Female

DRUGS (5)
  1. ALPHAGAN P [Suspect]
     Indication: GLAUCOMA
     Dosage: UNK, UNK
     Route: 047
     Dates: start: 20050101
  2. ATACAND [Concomitant]
     Dosage: 8 MG, QD
  3. SINGULAIR [Concomitant]
     Dosage: 10 MG, QD
  4. BIAXIN [Concomitant]
     Dosage: 250 MG, BID
  5. PLAQUENIL [Concomitant]
     Dosage: 100 MG, TIW

REACTIONS (1)
  - OCULAR HYPERAEMIA [None]
